FAERS Safety Report 17825820 (Version 2)
Quarter: 2020Q2

REPORT INFORMATION
  Report Type: Spontaneous
  Country: BR (occurrence: BR)
  Receive Date: 20200526
  Receipt Date: 20200529
  Transmission Date: 20200714
  Serious: Yes (Death, Other)
  Sender: FDA-Public Use
  Company Number: BR-PFIZER INC-2020204785

PATIENT
  Age: 62 Year
  Sex: Male
  Weight: 69.5 kg

DRUGS (23)
  1. ZINFORO [Concomitant]
     Active Substance: CEFTAROLINE FOSAMIL
     Dosage: 400 MG, 2X/DAY
     Route: 042
     Dates: start: 20200327, end: 20200328
  2. BROMOPRIDA [Concomitant]
     Dosage: 10 MG, 3X/DAY
     Route: 042
     Dates: start: 20200331, end: 20200406
  3. SOMALGIN [Concomitant]
     Active Substance: ASPIRIN\DIHYDROXYALUMINUM AMINOACETATE ANHYDROUS\MAGNESIUM CARBONATE
     Dosage: 81 MG, 1X/DAY
  4. ZITROMAX [Suspect]
     Active Substance: AZITHROMYCIN
     Indication: COVID-19 TREATMENT
     Dosage: 500 MG, 1X/DAY
     Route: 042
     Dates: start: 20200325, end: 20200404
  5. LINEZOLID. [Concomitant]
     Active Substance: LINEZOLID
     Dosage: 600 MG, 2X/DAY
     Route: 042
     Dates: start: 20200402
  6. POTASSIUM CHLORIDE. [Concomitant]
     Active Substance: POTASSIUM CHLORIDE
     Dosage: UNK
     Dates: start: 20200327, end: 20200406
  7. HEMOFOL [Concomitant]
     Dosage: 5000 IU, 3X/DAY
     Route: 058
     Dates: start: 20200327, end: 20200406
  8. HEPAMAX S [Concomitant]
     Dosage: UNK
     Dates: start: 20200327, end: 20200404
  9. ARADOIS [Concomitant]
     Active Substance: LOSARTAN POTASSIUM
     Dosage: 50 MG, 1X/DAY
  10. OSELTAMIVIR [Concomitant]
     Active Substance: OSELTAMIVIR
     Dosage: 75 MG, 2X/DAY
     Route: 048
     Dates: start: 20200322, end: 20200324
  11. ZINFORO [Concomitant]
     Active Substance: CEFTAROLINE FOSAMIL
     Dosage: 600 MG, 2X/DAY
     Route: 042
     Dates: start: 20200328, end: 20200402
  12. SODIUM CHLORIDE. [Concomitant]
     Active Substance: SODIUM CHLORIDE
     Dosage: UNK
     Dates: start: 20200401, end: 20200406
  13. EXODUS [ESCITALOPRAM OXALATE] [Concomitant]
     Dosage: 10 MG, 1X/DAY
  14. NEXIUM [Concomitant]
     Active Substance: ESOMEPRAZOLE MAGNESIUM
     Dosage: 20 MG, 1X/DAY
     Route: 006
     Dates: start: 20200401, end: 20200406
  15. REUQUINOL [Interacting]
     Active Substance: HYDROXYCHLOROQUINE SULFATE
     Indication: COVID-19 TREATMENT
     Dosage: 400 MG, 2X/DAY 12/12H
     Route: 048
     Dates: start: 20200324, end: 20200326
  16. REUQUINOL [Interacting]
     Active Substance: HYDROXYCHLOROQUINE SULFATE
     Dosage: 400 MG, 1X/DAY
     Route: 006
     Dates: start: 20200326, end: 20200401
  17. ATORVASTATIN CALCIUM. [Concomitant]
     Active Substance: ATORVASTATIN CALCIUM
     Dosage: 10 MG, 1X/DAY
     Route: 006
     Dates: start: 20200322, end: 20200406
  18. SODIUM BICARBONATE. [Concomitant]
     Active Substance: SODIUM BICARBONATE
     Dosage: UNK
     Route: 042
     Dates: start: 20200327, end: 20200406
  19. DORMIRE [MIDAZOLAM HYDROCHLORIDE] [Concomitant]
     Dosage: 100 MG, AS NEEDED (AS PHYSICIAN CRITERIA)
     Route: 042
     Dates: start: 20200326, end: 20200406
  20. FENTANEST [FENTANYL CITRATE] [Concomitant]
     Dosage: 2500 UG, AS NEEDED (AS PHYSICIAN CRITERIA)
     Route: 042
     Dates: start: 20200326, end: 20200406
  21. REUQUINOL [Interacting]
     Active Substance: HYDROXYCHLOROQUINE SULFATE
     Dosage: 200 MG, 1X/DAY
     Route: 006
     Dates: start: 20200401, end: 20200404
  22. ZINFORO [Concomitant]
     Active Substance: CEFTAROLINE FOSAMIL
     Dosage: 600 MG, 2X/DAY
     Route: 042
     Dates: start: 20200326, end: 20200327
  23. MERONEM [Concomitant]
     Active Substance: MEROPENEM
     Dosage: 1 G, 3X/DAY 8 / 8H
     Route: 042
     Dates: start: 20200402

REACTIONS (6)
  - Potentiating drug interaction [Recovered/Resolved]
  - Condition aggravated [Fatal]
  - Product use in unapproved indication [Unknown]
  - Off label use [Unknown]
  - Pyrexia [Unknown]
  - Electrocardiogram QT prolonged [Fatal]

NARRATIVE: CASE EVENT DATE: 202003
